FAERS Safety Report 9178389 (Version 1)
Quarter: 2013Q1

REPORT INFORMATION
  Report Type: Report from Study
  Country: CA (occurrence: CA)
  Receive Date: 20130321
  Receipt Date: 20130321
  Transmission Date: 20140127
  Serious: Yes (Death)
  Sender: FDA-Public Use
  Company Number: CA-ROCHE-1204537

PATIENT
  Age: 59 Year
  Sex: Male
  Weight: 62.6 kg

DRUGS (21)
  1. RITUXAN [Suspect]
     Indication: RHEUMATOID ARTHRITIS
     Route: 042
     Dates: start: 20120213, end: 20121119
  2. RITUXAN [Suspect]
     Indication: SJOGREN^S SYNDROME
  3. DIPHENHYDRAMINE HCL [Concomitant]
     Indication: PREMEDICATION
     Route: 048
     Dates: start: 20120213, end: 20121119
  4. ACETAMINOPHEN [Concomitant]
     Indication: PREMEDICATION
     Route: 048
     Dates: start: 20120213, end: 20121119
  5. METHYLPREDNISOLONE [Concomitant]
     Indication: PREMEDICATION
     Route: 042
     Dates: start: 20120213, end: 20121119
  6. ATIVAN [Concomitant]
  7. K-DUR [Concomitant]
  8. PROTRIN [Concomitant]
  9. MEDROL [Concomitant]
  10. FOLIC ACID [Concomitant]
  11. ASA [Concomitant]
  12. LIPITOR [Concomitant]
  13. LACTULOSE [Concomitant]
  14. DOCUSATE SODIUM [Concomitant]
  15. GABAPENTIN [Concomitant]
  16. ELAVIL [Concomitant]
  17. PLAQUENIL [Concomitant]
  18. PANTOLOC [Concomitant]
  19. FORTEO [Concomitant]
  20. ALENDRONATE [Concomitant]
  21. TYLENOL [Concomitant]

REACTIONS (1)
  - Death [Fatal]
